FAERS Safety Report 4752962-0 (Version None)
Quarter: 2005Q3

REPORT INFORMATION
  Report Type: 
  Country: None (occurrence: None)
  Receive Date: 20050825
  Receipt Date: 20050808
  Transmission Date: 20060218
  Serious: Yes (Hospitalization, Other)
  Sender: FDA-Public Use
  Company Number: COT_0166_2005

PATIENT
  Age: 63 Year
  Sex: Female
  Weight: 47.6 kg

DRUGS (7)
  1. VENTAVIS [Suspect]
     Indication: PULMONARY HYPERTENSION
     Dates: start: 20050714, end: 20050721
  2. VENTAVIS [Suspect]
     Indication: PULMONARY HYPERTENSION
     Dosage: 2.5 MCG IH
     Route: 055
     Dates: start: 20050721, end: 20050725
  3. NEURONTIN [Suspect]
     Indication: HERPES ZOSTER
     Dosage: 100 MG BID PO
     Route: 048
     Dates: start: 20050725
  4. ATIVAN [Suspect]
     Indication: ANXIETY
     Dosage: VAR PO
     Route: 048
     Dates: start: 20050701
  5. ATIVAN [Suspect]
     Indication: SLEEP DISORDER THERAPY
     Dosage: VAR PO
     Route: 048
     Dates: start: 20050701
  6. CIPROFLOXACIN HCL [Concomitant]
  7. ATIVAN [Concomitant]

REACTIONS (8)
  - ANAEMIA [None]
  - BACK PAIN [None]
  - BOWEL MOVEMENT IRREGULARITY [None]
  - HALLUCINATION [None]
  - HERPES ZOSTER [None]
  - MUSCLE SPASMS [None]
  - PERSONALITY CHANGE [None]
  - VOMITING [None]
